FAERS Safety Report 20189046 (Version 10)
Quarter: 2022Q3

REPORT INFORMATION
  Report Type: Other
  Country: JP (occurrence: JP)
  Receive Date: 20211215
  Receipt Date: 20220907
  Transmission Date: 20221027
  Serious: Yes (Hospitalization, Other)
  Sender: FDA-Public Use
  Company Number: JP-CHUGAI-2021030622

PATIENT
  Age: 70 Year
  Sex: Female
  Weight: 58.9 kg

DRUGS (12)
  1. ATEZOLIZUMAB [Suspect]
     Active Substance: ATEZOLIZUMAB
     Indication: Hepatocellular carcinoma
     Route: 041
     Dates: start: 20211014
  2. ATEZOLIZUMAB [Suspect]
     Active Substance: ATEZOLIZUMAB
     Route: 041
     Dates: end: 20220804
  3. BEVACIZUMAB [Suspect]
     Active Substance: BEVACIZUMAB
     Indication: Hepatocellular carcinoma
     Route: 041
     Dates: start: 20211014
  4. BEVACIZUMAB [Suspect]
     Active Substance: BEVACIZUMAB
     Route: 041
     Dates: end: 20220804
  5. AMINO ACIDS, SOURCE UNSPECIFIED [Concomitant]
     Active Substance: AMINO ACIDS, SOURCE UNSPECIFIED
     Indication: Hepatic cirrhosis
     Dosage: 4.15 GRAM, TID
     Route: 048
     Dates: start: 20200526
  6. NOVORAPID [Concomitant]
     Active Substance: INSULIN ASPART
     Indication: Diabetes mellitus
     Dosage: UNK
     Route: 058
     Dates: start: 20161102
  7. TRESIBA [Concomitant]
     Active Substance: INSULIN DEGLUDEC
     Indication: Diabetes mellitus
     Route: 058
     Dates: start: 20190319
  8. VICTOZA [Concomitant]
     Active Substance: LIRAGLUTIDE
     Indication: Diabetes mellitus
     Dosage: 0.9 MILLIGRAM
     Route: 058
     Dates: start: 20210302
  9. LAGNOS NF [Concomitant]
     Indication: Constipation
     Dosage: UNK
     Route: 048
     Dates: start: 20211112
  10. SENNA [Concomitant]
     Active Substance: SENNA LEAF\SENNOSIDES\SENNOSIDES A AND B
     Indication: Constipation
     Dosage: 160 MILLIGRAM, QD
     Route: 048
     Dates: start: 20211112
  11. MAGNESIUM OXIDE [Concomitant]
     Active Substance: MAGNESIUM OXIDE
     Indication: Constipation
     Dosage: 330 MILLIGRAM, TID
     Route: 048
     Dates: start: 20211112
  12. EURAX [Concomitant]
     Active Substance: CROTAMITON
     Indication: Rash
     Dosage: UNK
     Route: 061
     Dates: start: 20220331

REACTIONS (8)
  - Hepatic encephalopathy [Recovered/Resolved]
  - Hyperammonaemia [Unknown]
  - Stomatitis [Unknown]
  - Hand fracture [Recovered/Resolved]
  - Fall [Unknown]
  - Ascites [Unknown]
  - Hypertension [Recovered/Resolved]
  - Proteinuria [Unknown]

NARRATIVE: CASE EVENT DATE: 20211112
